FAERS Safety Report 15656128 (Version 1)
Quarter: 2018Q4

REPORT INFORMATION
  Report Type: Report from Study
  Country: JP (occurrence: JP)
  Receive Date: 20181126
  Receipt Date: 20181126
  Transmission Date: 20190205
  Serious: Yes (Death)
  Sender: FDA-Public Use
  Company Number: JP-PFIZER INC-2018481359

PATIENT
  Age: 48 Year
  Sex: Male
  Weight: 72 kg

DRUGS (6)
  1. VOLTAREN [Concomitant]
     Active Substance: DICLOFENAC SODIUM
     Route: 048
  2. TALION [BEPOTASTINE BESILATE] [Concomitant]
     Route: 048
  3. PROMAC [POLAPREZINC] [Concomitant]
     Active Substance: POLAPREZINC
     Route: 048
  4. XELJANZ [Suspect]
     Active Substance: TOFACITINIB CITRATE
     Indication: RHEUMATOID ARTHRITIS
     Dosage: 5 MG, 2X/DAY
     Route: 048
     Dates: start: 20151116, end: 20180718
  5. CYTOTEC [Concomitant]
     Active Substance: MISOPROSTOL
     Route: 048
  6. KOLBET [Concomitant]
     Active Substance: IGURATIMOD
     Indication: RHEUMATOID ARTHRITIS
     Dosage: UNK

REACTIONS (1)
  - Cerebral infarction [Fatal]

NARRATIVE: CASE EVENT DATE: 20180718
